FAERS Safety Report 9894090 (Version 3)
Quarter: 2014Q1

REPORT INFORMATION
  Report Type: Spontaneous
  Country: JP (occurrence: JP)
  Receive Date: 20140213
  Receipt Date: 20140328
  Transmission Date: 20141002
  Serious: Yes (Other)
  Sender: FDA-Public Use
  Company Number: JP-ELI_LILLY_AND_COMPANY-JP201311007204

PATIENT
  Age: 65 Year
  Sex: Male
  Weight: 80 kg

DRUGS (4)
  1. CYMBALTA [Suspect]
     Indication: DEPRESSION
     Dosage: 20 MG, QD
     Route: 048
     Dates: start: 20130801, end: 20130921
  2. BENZALIN                           /00036201/ [Concomitant]
     Indication: INSOMNIA
     Dosage: 5 MG, QD
     Route: 048
     Dates: start: 201004
  3. EPADEL                             /01682402/ [Concomitant]
     Indication: HYPERLIPIDAEMIA
     Dosage: 600 MG, BID
     Route: 065
     Dates: start: 201004
  4. JUVELA N [Concomitant]
     Indication: HYPERLIPIDAEMIA
     Dosage: 200 MG, BID
     Route: 065
     Dates: start: 201004

REACTIONS (1)
  - Rhabdomyolysis [Recovered/Resolved]
